FAERS Safety Report 5497566-X (Version None)
Quarter: 2007Q4

REPORT INFORMATION
  Report Type: 
  Country: None (occurrence: None)
  Receive Date: 20071025
  Receipt Date: 20061208
  Transmission Date: 20080405
  Serious: No
  Sender: FDA-Public Use
  Company Number: A0630975A

PATIENT
  Sex: Female

DRUGS (8)
  1. ADVAIR DISKUS 100/50 [Suspect]
     Indication: CHRONIC OBSTRUCTIVE PULMONARY DISEASE
     Dosage: 1PUFF TWICE PER DAY
     Route: 055
     Dates: end: 20060101
  2. CYMBALTA [Concomitant]
  3. CLARITIN [Concomitant]
  4. SUDAFED 12 HOUR [Concomitant]
  5. MULTI-VITAMIN [Concomitant]
  6. CALCIUM SUPPLEMENT [Concomitant]
  7. DARVOCET [Concomitant]
  8. IBUPROFEN [Concomitant]

REACTIONS (2)
  - LACTOSE INTOLERANCE [None]
  - MALAISE [None]
